FAERS Safety Report 13562124 (Version 4)
Quarter: 2017Q4

REPORT INFORMATION
  Report Type: Report from Study
  Country: GB (occurrence: GB)
  Receive Date: 20170519
  Receipt Date: 20171004
  Transmission Date: 20180320
  Serious: Yes (Hospitalization, Other)
  Sender: FDA-Public Use
  Company Number: GB-BRISTOL-MYERS SQUIBB COMPANY-BMS-2017-043076

PATIENT
  Sex: Female

DRUGS (1)
  1. ABATACEPT [Suspect]
     Active Substance: ABATACEPT
     Indication: RHEUMATOID ARTHRITIS
     Dosage: 125 MG, QWK
     Route: 058
     Dates: start: 20170111

REACTIONS (10)
  - Emotional distress [Unknown]
  - Gait inability [Unknown]
  - Vomiting [Unknown]
  - Depression [Unknown]
  - Functional gastrointestinal disorder [Unknown]
  - Hospitalisation [Unknown]
  - Dysuria [Unknown]
  - Malaise [Unknown]
  - Rheumatoid arthritis [Recovering/Resolving]
  - Knee operation [Unknown]
